FAERS Safety Report 25222551 (Version 1)
Quarter: 2025Q2

REPORT INFORMATION
  Report Type: Spontaneous
  Country: US (occurrence: US)
  Receive Date: 20250421
  Receipt Date: 20250421
  Transmission Date: 20250716
  Serious: Yes (Other)
  Sender: BRISTOL-MYERS SQUIBB COMPANY
  Company Number: US-BRISTOL-MYERS SQUIBB COMPANY-2025-056295

PATIENT
  Age: 65 Year
  Sex: Female

DRUGS (7)
  1. APIXABAN [Suspect]
     Active Substance: APIXABAN
     Indication: Atrial fibrillation
  2. ETOPOSIDE [Concomitant]
     Active Substance: ETOPOSIDE
     Indication: B-cell lymphoma
  3. DOXORUBICIN [Concomitant]
     Active Substance: DOXORUBICIN
     Indication: B-cell lymphoma
  4. CYCLOPHOSPHAMIDE [Concomitant]
     Active Substance: CYCLOPHOSPHAMIDE
     Indication: B-cell lymphoma
  5. VINCRISTINE [Concomitant]
     Active Substance: VINCRISTINE
     Indication: B-cell lymphoma
  6. PREDNISONE [Concomitant]
     Active Substance: PREDNISONE
     Indication: B-cell lymphoma
  7. RITUXIMAB [Concomitant]
     Active Substance: RITUXIMAB
     Indication: B-cell lymphoma

REACTIONS (2)
  - Melaena [Recovering/Resolving]
  - Iron deficiency anaemia [Recovering/Resolving]
